FAERS Safety Report 13333081 (Version 1)
Quarter: 2017Q1

REPORT INFORMATION
  Report Type: Spontaneous
  Country: US (occurrence: US)
  Receive Date: 20170313
  Receipt Date: 20170313
  Transmission Date: 20170428
  Serious: No
  Sender: FDA-Public Use
  Company Number: US-SHIRE-US201704586

PATIENT
  Age: 41 Year
  Sex: Male
  Weight: 147.39 kg

DRUGS (8)
  1. AMLODIPINE [Concomitant]
     Active Substance: AMLODIPINE BESYLATE
     Indication: BLOOD PRESSURE ABNORMAL
     Dosage: 5 MG, 1X/DAY:QD
     Route: 048
     Dates: start: 201702
  2. PENTASA [Suspect]
     Active Substance: MESALAMINE
     Dosage: 2000 MG (FOUR 500 MG CAPSULES), 2X/DAY:BID
     Route: 048
     Dates: start: 201702, end: 201702
  3. METOPROLOL. [Concomitant]
     Active Substance: METOPROLOL
     Indication: BLOOD PRESSURE ABNORMAL
     Dosage: 50 MG, 1X/DAY:QD
     Route: 048
     Dates: start: 201702
  4. HYDROCHLOROTHIAZIDE. [Concomitant]
     Active Substance: HYDROCHLOROTHIAZIDE
     Indication: BLOOD PRESSURE ABNORMAL
     Dosage: 25 MG, 1X/DAY:QD
     Route: 048
     Dates: start: 201702
  5. PENTASA [Suspect]
     Active Substance: MESALAMINE
     Indication: CROHN^S DISEASE
     Dosage: 2000 MG (FOUR 500 MG CAPSULES), 2X/DAY:BID
  6. PENTASA [Suspect]
     Active Substance: MESALAMINE
     Dosage: 1000 MG, UNKNOWN (HALF DOSE)
     Route: 048
     Dates: start: 20170228
  7. METFORMIN [Concomitant]
     Active Substance: METFORMIN HYDROCHLORIDE
     Indication: BLOOD GLUCOSE INCREASED
     Dosage: 5000 MG, 1X/DAY:QD
     Route: 048
     Dates: start: 201702
  8. LISINOPRIL. [Concomitant]
     Active Substance: LISINOPRIL
     Indication: BLOOD PRESSURE ABNORMAL
     Dosage: 40 MG, 1X/DAY:QD
     Route: 048
     Dates: start: 201702

REACTIONS (4)
  - Blood pressure decreased [Not Recovered/Not Resolved]
  - Musculoskeletal pain [Not Recovered/Not Resolved]
  - Product use issue [Not Recovered/Not Resolved]
  - Incorrect dose administered [Recovered/Resolved]

NARRATIVE: CASE EVENT DATE: 20170228
